FAERS Safety Report 21726808 (Version 3)
Quarter: 2023Q1

REPORT INFORMATION
  Report Type: Report from Study
  Country: CA (occurrence: CA)
  Receive Date: 20221214
  Receipt Date: 20230105
  Transmission Date: 20230417
  Serious: Yes (Other)
  Sender: FDA-Public Use
  Company Number: CA-TAKEDA-2022TUS050204

PATIENT
  Age: 28 Year
  Sex: Female
  Weight: 11.338 kg

DRUGS (3)
  1. VEDOLIZUMAB [Suspect]
     Active Substance: VEDOLIZUMAB
     Indication: Colitis ulcerative
     Dosage: 300 MILLIGRAM
     Route: 042
     Dates: start: 20220204
  2. VEDOLIZUMAB [Suspect]
     Active Substance: VEDOLIZUMAB
     Dosage: 300 MILLIGRAM
     Route: 042
     Dates: end: 20221028
  3. MESALAMINE [Concomitant]
     Active Substance: MESALAMINE
     Dosage: UNK
     Dates: start: 202111

REACTIONS (5)
  - Colitis ulcerative [Unknown]
  - Weight increased [Recovered/Resolved]
  - Peripheral swelling [Recovered/Resolved]
  - Abdominal distension [Recovered/Resolved]
  - Drug ineffective [Unknown]
